FAERS Safety Report 14173900 (Version 2)
Quarter: 2017Q4

REPORT INFORMATION
  Report Type: Report from Study
  Country: FR (occurrence: FR)
  Receive Date: 20171109
  Receipt Date: 20171204
  Transmission Date: 20180321
  Serious: Yes (Other)
  Sender: FDA-Public Use
  Company Number: FR-TEVA-301254ISR

PATIENT
  Age: 91 Year
  Sex: Female

DRUGS (2)
  1. RISPERIDONE. [Suspect]
     Active Substance: RISPERIDONE
  2. PAROXETINE. [Suspect]
     Active Substance: PAROXETINE

REACTIONS (3)
  - Fall [Recovered/Resolved]
  - Abnormal behaviour [Recovered/Resolved]
  - Hyponatraemia [Recovered/Resolved]
